FAERS Safety Report 8309384-5 (Version None)
Quarter: 2012Q2

REPORT INFORMATION
  Report Type: 
  Country: None (occurrence: None)
  Receive Date: 20120420
  Receipt Date: 20120411
  Transmission Date: 20120825
  Serious: Yes (Hospitalization)
  Sender: FDA-Public Use
  Company Number: 2012AP001001

PATIENT
  Age: 76 Year
  Sex: Female

DRUGS (8)
  1. FUROSEMIDE [Concomitant]
  2. SIMVASTATIN [Suspect]
     Indication: PRODUCT USED FOR UNKNOWN INDICATION
     Dosage: 20 MG, PO, QD
     Dates: start: 20120305
  3. CIPROFLOXACIN [Suspect]
     Indication: LIVER ABSCESS
     Dosage: 750 MG, PO, BID
     Dates: start: 20120216, end: 20120305
  4. FLUTICASONE PROPIONATE/SALMETEROL [Concomitant]
  5. SPIRIVA [Concomitant]
  6. LANSOPRAZOLE [Concomitant]
  7. RAMIPRIL [Suspect]
     Indication: PRODUCT USED FOR UNKNOWN INDICATION
     Dosage: 2.5 MG, QD, PO
     Route: 048
     Dates: start: 20120305
  8. ASPIRIN [Concomitant]

REACTIONS (2)
  - DEHYDRATION [None]
  - RENAL FAILURE ACUTE [None]
